FAERS Safety Report 12779812 (Version 1)
Quarter: 2016Q3

REPORT INFORMATION
  Report Type: Spontaneous
  Country: US (occurrence: US)
  Receive Date: 20160926
  Receipt Date: 20160926
  Transmission Date: 20161109
  Serious: No
  Sender: FDA-Public Use
  Company Number: US-ASTRAZENECA-2013SE36205

PATIENT
  Age: 862 Month
  Sex: Female
  Weight: 80.3 kg

DRUGS (14)
  1. BYETTA [Suspect]
     Active Substance: EXENATIDE
     Indication: TYPE 2 DIABETES MELLITUS
     Dosage: 5.0UG UNKNOWN
     Route: 058
     Dates: start: 20120426
  2. BYETTA [Suspect]
     Active Substance: EXENATIDE
     Indication: TYPE 2 DIABETES MELLITUS
     Dosage: 0.25 MG/ML10.0UG UNKNOWN
     Route: 058
     Dates: start: 2009, end: 2009
  3. BYDUREON [Suspect]
     Active Substance: EXENATIDE
     Indication: TYPE 2 DIABETES MELLITUS
     Dosage: EXENATIDE LONG ACTING RELEASE
     Route: 058
     Dates: start: 201208
  4. LEVEMIR [Concomitant]
     Active Substance: INSULIN DETEMIR
     Indication: TYPE 2 DIABETES MELLITUS
     Dosage: 15 UNITS INJ QHS
     Route: 058
  5. GLUCOVANCE [Concomitant]
     Active Substance: GLYBURIDE\METFORMIN HYDROCHLORIDE
     Indication: TYPE 2 DIABETES MELLITUS
     Dosage: 1.25-250MG TWO TIMES A DAY
     Route: 048
  6. BYETTA [Suspect]
     Active Substance: EXENATIDE
     Indication: TYPE 2 DIABETES MELLITUS
     Dosage: EXENATIDE LONG ACTING RELEASE2.0MG UNKNOWN
     Route: 058
     Dates: start: 201208
  7. GLUCOVANCE [Concomitant]
     Active Substance: GLYBURIDE\METFORMIN HYDROCHLORIDE
     Indication: DIABETES MELLITUS
     Dosage: 1.25-250MG TWO TIMES A DAY
     Route: 048
  8. LEVEMIR [Concomitant]
     Active Substance: INSULIN DETEMIR
     Indication: TYPE 2 DIABETES MELLITUS
     Dosage: 11 UNITS INJ QHS
     Route: 058
  9. TRULICITY [Concomitant]
     Active Substance: DULAGLUTIDE
     Indication: DIABETES MELLITUS
     Dosage: 500 MG, QD
     Route: 048
  10. VICTOZA [Concomitant]
     Active Substance: LIRAGLUTIDE
     Indication: DIABETES MELLITUS
     Dosage: 500 MG, QD
     Route: 048
  11. GLUCOVANCE [Concomitant]
     Active Substance: GLYBURIDE\METFORMIN HYDROCHLORIDE
     Indication: DIABETES MELLITUS
     Dosage: 1.25-250MG DAILY
     Route: 048
  12. GLUCOVANCE [Concomitant]
     Active Substance: GLYBURIDE\METFORMIN HYDROCHLORIDE
     Indication: TYPE 2 DIABETES MELLITUS
     Dosage: 1.25-250MG DAILY
     Route: 048
  13. METFORMIN [Concomitant]
     Active Substance: METFORMIN HYDROCHLORIDE
     Dosage: 500 MG, QD
     Route: 048
  14. BYDUREON [Suspect]
     Active Substance: EXENATIDE
     Indication: TYPE 2 DIABETES MELLITUS
     Route: 058
     Dates: start: 20120914

REACTIONS (14)
  - Alopecia [Not Recovered/Not Resolved]
  - Off label use [Recovered/Resolved]
  - Nasopharyngitis [Not Recovered/Not Resolved]
  - Herpes zoster [Recovered/Resolved]
  - Injection site nodule [Recovered/Resolved]
  - Injection site haemorrhage [Recovered/Resolved]
  - Weight decreased [Unknown]
  - Stress [Unknown]
  - Blood glucose decreased [Not Recovered/Not Resolved]
  - Nausea [Recovered/Resolved]
  - Asthenia [Not Recovered/Not Resolved]
  - Diarrhoea [Recovered/Resolved]
  - Cough [Recovered/Resolved]
  - Decreased appetite [Recovered/Resolved]

NARRATIVE: CASE EVENT DATE: 201208
